FAERS Safety Report 18013097 (Version 1)
Quarter: 2020Q3

REPORT INFORMATION
  Report Type: Spontaneous
  Country: US (occurrence: US)
  Receive Date: 20200710
  Receipt Date: 20200710
  Transmission Date: 20201103
  Serious: Yes (Hospitalization)
  Sender: FDA-Public Use
  Company Number: None

PATIENT
  Age: 31 Year
  Sex: Male
  Weight: 60 kg

DRUGS (1)
  1. DEFERASIROX. [Suspect]
     Active Substance: DEFERASIROX
     Indication: IRON OVERLOAD
     Route: 048
     Dates: start: 20200620, end: 20200705

REACTIONS (11)
  - Blood fibrinogen decreased [None]
  - Abdominal pain [None]
  - Vomiting [None]
  - Acute kidney injury [None]
  - Thrombocytopenia [None]
  - Leukopenia [None]
  - Nausea [None]
  - Disseminated intravascular coagulation [None]
  - Liver injury [None]
  - Red blood cell schistocytes [None]
  - International normalised ratio increased [None]

NARRATIVE: CASE EVENT DATE: 20200707
